FAERS Safety Report 8329938-X (Version None)
Quarter: 2012Q2

REPORT INFORMATION
  Report Type: 
  Country: None (occurrence: None)
  Receive Date: 20120502
  Receipt Date: 20091121
  Transmission Date: 20120825
  Serious: No
  Sender: FDA-Public Use
  Company Number: US-TEVA-2009029242

PATIENT
  Sex: Male
  Weight: 74.91 kg

DRUGS (2)
  1. PROVIGIL [Concomitant]
     Indication: DEPRESSED LEVEL OF CONSCIOUSNESS
     Dosage: 200 MILLIGRAM;
     Route: 048
     Dates: start: 20081101
  2. NUVIGIL [Suspect]
     Indication: DEPRESSED LEVEL OF CONSCIOUSNESS
     Dosage: 150 MILLIGRAM;
     Route: 048
     Dates: start: 20091120, end: 20091120

REACTIONS (1)
  - DRUG INEFFECTIVE FOR UNAPPROVED INDICATION [None]
